FAERS Safety Report 17813698 (Version 3)
Quarter: 2020Q2

REPORT INFORMATION
  Report Type: Report from Study
  Country: US (occurrence: US)
  Receive Date: 20200521
  Receipt Date: 20200609
  Transmission Date: 20200714
  Serious: Yes (Death, Hospitalization)
  Sender: FDA-Public Use
  Company Number: US-ACTELION-A-NJ2018-169541

PATIENT
  Age: 43 Year
  Sex: Female
  Weight: 114.29 kg

DRUGS (3)
  1. REMODULIN [Suspect]
     Active Substance: TREPROSTINIL
     Indication: PRODUCT USED FOR UNKNOWN INDICATION
     Route: 042
  2. XARELTO [Concomitant]
     Active Substance: RIVAROXABAN
  3. OPSUMIT [Suspect]
     Active Substance: MACITENTAN
     Indication: PULMONARY HYPERTENSION
     Dosage: 10 MG, QD
     Route: 048
     Dates: end: 20200509

REACTIONS (16)
  - Vascular device infection [Fatal]
  - Dizziness [Unknown]
  - Shock [Fatal]
  - Hypoaesthesia [Unknown]
  - Drug dose omission by device [Unknown]
  - Pulseless electrical activity [Fatal]
  - Endocarditis staphylococcal [Fatal]
  - Pain in extremity [Unknown]
  - Headache [Unknown]
  - Staphylococcal infection [Fatal]
  - Chest pain [Unknown]
  - Device issue [Unknown]
  - Paraesthesia [Unknown]
  - Lung disorder [Fatal]
  - Infusion site discharge [Unknown]
  - Device breakage [Unknown]

NARRATIVE: CASE EVENT DATE: 20200509
